FAERS Safety Report 24594637 (Version 1)
Quarter: 2024Q4

REPORT INFORMATION
  Report Type: Report from Study
  Country: US (occurrence: US)
  Receive Date: 20241108
  Receipt Date: 20241108
  Transmission Date: 20250114
  Serious: Yes (Hospitalization, Other)
  Sender: BAYER HEALTHCARE PHARMACEUTICALS INC.
  Company Number: US-BAYER-2024A152918

PATIENT
  Age: 69 Year
  Sex: Female

DRUGS (1)
  1. STIVARGA [Suspect]
     Active Substance: REGORAFENIB MONOHYDRATE
     Indication: Rectosigmoid cancer
     Dosage: 80 MG, QD
     Route: 048
     Dates: start: 202410

REACTIONS (4)
  - Blood sodium decreased [Not Recovered/Not Resolved]
  - Illness [Not Recovered/Not Resolved]
  - Off label use [None]
  - Decreased appetite [Not Recovered/Not Resolved]

NARRATIVE: CASE EVENT DATE: 20241031
